FAERS Safety Report 4519286-8 (Version None)
Quarter: 2004Q4

REPORT INFORMATION
  Report Type: 
  Country: None (occurrence: None)
  Receive Date: 20041201
  Receipt Date: 20041118
  Transmission Date: 20050328
  Serious: Yes (Death, Other)
  Sender: FDA-Public Use
  Company Number: 2004096018

PATIENT
  Age: 67 Year
  Sex: Male

DRUGS (2)
  1. NEURONTIN [Suspect]
     Indication: DIABETIC NEUROPATHY
     Dates: end: 20021030
  2. NEURONTIN [Suspect]
     Indication: RESTLESS LEGS SYNDROME
     Dates: end: 20021030

REACTIONS (3)
  - ANXIETY [None]
  - COMPLETED SUICIDE [None]
  - POLYTRAUMATISM [None]
